FAERS Safety Report 7291845-1 (Version None)
Quarter: 2011Q1

REPORT INFORMATION
  Report Type: 
  Country: None (occurrence: None)
  Receive Date: 20110214
  Receipt Date: 20110209
  Transmission Date: 20110831
  Serious: Yes (Death, Hospitalization)
  Sender: FDA-Public Use
  Company Number: BA-ROCHE-753509

PATIENT
  Sex: Female
  Weight: 85 kg

DRUGS (1)
  1. BEVACIZUMAB [Suspect]
     Dosage: DOSE FORM: VIAL  DATE OF LAST DOSE PRIOR TO SAE: 31 DEC 10
     Route: 042
     Dates: start: 20101217, end: 20110114

REACTIONS (1)
  - ILEUS [None]
